FAERS Safety Report 5900636-2 (Version None)
Quarter: 2008Q3

REPORT INFORMATION
  Report Type: 
  Country: None (occurrence: None)
  Receive Date: 20080926
  Receipt Date: 20080916
  Transmission Date: 20090109
  Serious: Yes (Hospitalization)
  Sender: FDA-Public Use
  Company Number: FR-PFIZER INC-2008078576

PATIENT
  Sex: Male

DRUGS (10)
  1. SOLU-MEDROL [Suspect]
     Dosage: DAILY DOSE:120MG
     Route: 042
     Dates: start: 20070401, end: 20071211
  2. DETICENE [Suspect]
     Route: 042
     Dates: start: 20070401, end: 20071211
  3. VELBE [Suspect]
     Route: 042
     Dates: start: 20070401, end: 20071211
  4. BLEOMYCIN SULFATE [Suspect]
     Route: 042
     Dates: start: 20070401, end: 20071211
  5. PLITICAN [Suspect]
     Dosage: TEXT:EVERY DAY TDD:1 DOSAGE FORM
     Route: 042
     Dates: start: 20070401, end: 20071211
  6. ZOPHREN [Suspect]
     Route: 042
     Dates: start: 20070401, end: 20071211
  7. DOXORUBICIN HYDROCHLORIDE [Concomitant]
     Route: 042
     Dates: start: 20070401, end: 20071211
  8. PREDNISONE [Concomitant]
  9. METOCLOPRAMIDE [Concomitant]
  10. DEXCHLORPHENIRAMINE MALEATE [Concomitant]

REACTIONS (1)
  - SCLERODERMA [None]
